FAERS Safety Report 5193927-7 (Version None)
Quarter: 2006Q4

REPORT INFORMATION
  Report Type: 
  Country: None (occurrence: None)
  Receive Date: 20061228
  Receipt Date: 20061204
  Transmission Date: 20070319
  Serious: Yes (Other)
  Sender: FDA-Public Use
  Company Number: 2006UW28435

PATIENT
  Sex: Male

DRUGS (3)
  1. CRESTOR [Suspect]
     Route: 048
  2. BIAXIN [Interacting]
  3. LIPIDIL [Concomitant]

REACTIONS (2)
  - DRUG INTERACTION [None]
  - SYNCOPE [None]
